FAERS Safety Report 20186086 (Version 4)
Quarter: 2022Q1

REPORT INFORMATION
  Report Type: Spontaneous
  Country: PT (occurrence: PT)
  Receive Date: 20211215
  Receipt Date: 20220107
  Transmission Date: 20220424
  Serious: Yes (Hospitalization, Disabling, Other)
  Sender: FDA-Public Use
  Company Number: PT-ALTER-2021000083

PATIENT
  Age: 70 Year
  Sex: Female

DRUGS (3)
  1. SIMVASTATIN [Suspect]
     Active Substance: SIMVASTATIN
     Indication: Dyslipidaemia
     Dosage: 20 MILLIGRAM, ONCE A DAY (UNTIL JANUARY )
     Route: 048
  2. SIMVASTATIN [Suspect]
     Active Substance: SIMVASTATIN
     Dosage: 40 MILLIGRAM, ONCE A DAY ((JANUARY THE DOSE INCREASED TO 40MG )
     Route: 048
     Dates: start: 202101
  3. SIMVASTATIN [Suspect]
     Active Substance: SIMVASTATIN
     Dosage: UNK
     Route: 065

REACTIONS (5)
  - Immune-mediated myositis [Recovering/Resolving]
  - Myopathy [Recovering/Resolving]
  - Disease progression [Recovering/Resolving]
  - Myalgia [Recovering/Resolving]
  - Muscle strength abnormal [Recovering/Resolving]

NARRATIVE: CASE EVENT DATE: 20210601
